FAERS Safety Report 9593788 (Version 2)
Quarter: 2014Q3

REPORT INFORMATION
  Report Type: Report from Study
  Country: US (occurrence: US)
  Receive Date: 20131004
  Receipt Date: 20140804
  Transmission Date: 20150326
  Serious: No
  Sender: FDA-Public Use
  Company Number: US-ALEXION-A201301945

PATIENT

DRUGS (2)
  1. MAGNESIUM SULFATE [Concomitant]
     Active Substance: MAGNESIUM SULFATE
     Indication: SUPPLEMENTATION THERAPY
     Dosage: 2 MG, QW
     Route: 042
     Dates: start: 20130508
  2. SOLIRIS [Suspect]
     Active Substance: ECULIZUMAB
     Indication: HAEMOLYTIC URAEMIC SYNDROME
     Dosage: 1200 MG, QW X 4 DAY 1-7
     Route: 042
     Dates: start: 20130508

REACTIONS (5)
  - Hypertension [Recovering/Resolving]
  - Blood creatinine increased [Unknown]
  - Fatigue [Unknown]
  - Blood potassium abnormal [Unknown]
  - Asthenia [Not Recovered/Not Resolved]
